FAERS Safety Report 5796383-0 (Version None)
Quarter: 2008Q2

REPORT INFORMATION
  Report Type: 
  Country: None (occurrence: None)
  Receive Date: 20080630
  Receipt Date: 20080630
  Transmission Date: 20081010
  Serious: Yes (Other)
  Sender: FDA-Public Use
  Company Number: None

PATIENT
  Age: 28 Year
  Sex: Female
  Weight: 49.8957 kg

DRUGS (1)
  1. GABAPENTIN [Suspect]
     Indication: GENERALISED ANXIETY DISORDER
     Dosage: 100 MG 3 TIMES DAILY PO
     Route: 048
     Dates: start: 20080620, end: 20080627

REACTIONS (3)
  - DYSPHONIA [None]
  - INFLUENZA LIKE ILLNESS [None]
  - PHARYNGOLARYNGEAL PAIN [None]
